FAERS Safety Report 8536537 (Version 3)
Quarter: 2013Q1

REPORT INFORMATION
  Report Type: Spontaneous
  Country: US (occurrence: US)
  Receive Date: 20120430
  Receipt Date: 20130225
  Transmission Date: 20140127
  Serious: Yes (Other)
  Sender: FDA-Public Use
  Company Number: US-ROCHE-1056711

PATIENT
  Sex: Male
  Weight: 77 kg

DRUGS (4)
  1. PEGASYS [Suspect]
     Indication: HEPATITIS C
     Route: 058
     Dates: start: 20120210, end: 20120405
  2. RIBAVIRIN [Suspect]
     Indication: HEPATITIS C
     Route: 065
     Dates: start: 20120210, end: 20120405
  3. INCIVEK [Suspect]
     Indication: HEPATITIS C
     Route: 048
     Dates: start: 20120210, end: 20120405
  4. TELAPREVIR [Concomitant]

REACTIONS (6)
  - Retinal haemorrhage [Unknown]
  - Vitreous floaters [Not Recovered/Not Resolved]
  - Photopsia [Recovered/Resolved]
  - Eye disorder [Recovering/Resolving]
  - Vision blurred [Not Recovered/Not Resolved]
  - Hepatitis C [Unknown]
